FAERS Safety Report 10148849 (Version 1)
Quarter: 2014Q2

REPORT INFORMATION
  Report Type: Report from Study
  Country: US (occurrence: US)
  Receive Date: 20140502
  Receipt Date: 20140502
  Transmission Date: 20141212
  Serious: Yes (Hospitalization, Other)
  Sender: FDA-Public Use
  Company Number: US-ROCHE-1388598

PATIENT
  Age: 14 Year
  Sex: Male
  Weight: 35.02 kg

DRUGS (13)
  1. NUTROPIN [Suspect]
     Indication: BODY HEIGHT BELOW NORMAL
     Route: 058
     Dates: start: 201202
  2. NUTROPIN [Suspect]
     Indication: CYSTIC FIBROSIS
  3. XYZAL [Concomitant]
     Route: 048
  4. ZANTAC [Concomitant]
     Route: 048
  5. ZOFRAN ODT [Concomitant]
     Indication: NAUSEA
     Route: 048
  6. ZOFRAN ODT [Concomitant]
     Indication: VOMITING
  7. HYDROXYZINE HYDROCHLORIDE [Concomitant]
     Route: 048
  8. AQUADEKS [Concomitant]
     Route: 048
  9. CAYSTON [Concomitant]
     Route: 065
  10. DALLERGY [Concomitant]
  11. PERTZYE [Concomitant]
     Dosage: 16000 UNIT, 57500 UNITS AND 60500 UNITS
     Route: 048
  12. PULMOZYME NEBULISER [Concomitant]
     Dosage: 2.5 MG/2.5 ML
     Route: 065
  13. ALBUTEROL INHALATION SOLUTION [Concomitant]
     Dosage: 2.5 MG, 0.5 ML
     Route: 065

REACTIONS (12)
  - Cystic fibrosis [Unknown]
  - Hyperglycaemia [Unknown]
  - Blood glucose increased [Unknown]
  - Glycosylated haemoglobin increased [Unknown]
  - Pulmonary function test decreased [Recovered/Resolved]
  - Lethargy [Unknown]
  - Headache [Unknown]
  - Hunger [Unknown]
  - Polyuria [Unknown]
  - Frustration [Unknown]
  - Feeling abnormal [Unknown]
  - Treatment noncompliance [Unknown]
